FAERS Safety Report 24438674 (Version 2)
Quarter: 2024Q4

REPORT INFORMATION
  Report Type: Spontaneous
  Country: FR (occurrence: FR)
  Receive Date: 20241015
  Receipt Date: 20241202
  Transmission Date: 20250115
  Serious: Yes (Hospitalization, Other)
  Sender: SANOFI AVENTIS
  Company Number: FR-EMA-20170322-pvevhp-173010075

PATIENT
  Age: 9 Year
  Sex: Female

DRUGS (7)
  1. RIFAMPIN [Suspect]
     Active Substance: RIFAMPIN
     Indication: Staphylococcal abscess
     Dosage: UNK (D24-28)
     Route: 048
  2. AMOXICILLIN\CLAVULANIC ACID [Suspect]
     Active Substance: AMOXICILLIN\CLAVULANIC ACID
     Indication: Staphylococcal abscess
     Dosage: UNK (D1-4)
  3. AMOXICILLIN\CLAVULANIC ACID [Suspect]
     Active Substance: AMOXICILLIN\CLAVULANIC ACID
     Dosage: UNK (D24-28)
     Route: 048
  4. CLINDAMYCIN HYDROCHLORIDE [Suspect]
     Active Substance: CLINDAMYCIN HYDROCHLORIDE
     Indication: Staphylococcal abscess
     Dosage: UNK (D1-24)
  5. COLCHICINE [Suspect]
     Active Substance: COLCHICINE
     Indication: Pericarditis
     Dosage: UNK (D1-28)
  6. OXACILLIN [Suspect]
     Active Substance: OXACILLIN SODIUM
     Indication: Staphylococcal abscess
     Dosage: UNK (D4-24)
  7. AMIKACIN [Suspect]
     Active Substance: AMIKACIN
     Indication: Staphylococcal abscess
     Dosage: UNK (D1-2)

REACTIONS (14)
  - Drug reaction with eosinophilia and systemic symptoms [Recovering/Resolving]
  - Pyrexia [Recovering/Resolving]
  - Malaise [Recovering/Resolving]
  - Asthenia [Recovering/Resolving]
  - Rash maculo-papular [Recovering/Resolving]
  - Rash pruritic [Recovering/Resolving]
  - Face oedema [Recovering/Resolving]
  - Eyelid oedema [Recovering/Resolving]
  - Cheilitis [Recovering/Resolving]
  - Lymphadenopathy [Recovering/Resolving]
  - Hepatic cytolysis [Recovering/Resolving]
  - Eosinophilia [Recovering/Resolving]
  - Inflammation [Recovering/Resolving]
  - Skin lesion [Recovering/Resolving]
